FAERS Safety Report 25414388 (Version 1)
Quarter: 2025Q2

REPORT INFORMATION
  Report Type: Spontaneous
  Country: DE (occurrence: DE)
  Receive Date: 20250609
  Receipt Date: 20250609
  Transmission Date: 20250716
  Serious: Yes (Other)
  Sender: MYLAN
  Company Number: DE-DR. FALK PHARMA GMBH-MU-006-25

PATIENT
  Sex: Female

DRUGS (3)
  1. GABAPENTIN [Interacting]
     Active Substance: GABAPENTIN
     Indication: Product used for unknown indication
  2. HERBALS\PLANTAGO OVATA LEAF [Interacting]
     Active Substance: HERBALS\PLANTAGO OVATA LEAF
     Indication: Diarrhoea
  3. HERBALS\PLANTAGO OVATA LEAF [Interacting]
     Active Substance: HERBALS\PLANTAGO OVATA LEAF
     Indication: Inflammatory bowel disease

REACTIONS (2)
  - Epilepsy [Unknown]
  - Drug interaction [Unknown]
